FAERS Safety Report 17354672 (Version 1)
Quarter: 2020Q1

REPORT INFORMATION
  Report Type: Spontaneous
  Country: US (occurrence: US)
  Receive Date: 20190822
  Receipt Date: 20190822
  Transmission Date: 20200409
  Serious: No
  Sender: FDA-Public Use
  Company Number: None

PATIENT
  Age: 23 Year
  Sex: Female

DRUGS (8)
  1. WELLBUTRIN [Concomitant]
     Active Substance: BUPROPION HYDROCHLORIDE
  2. PANTOPRAZOL [Concomitant]
     Active Substance: PANTOPRAZOLE SODIUM
  3. ZOLOFT [Concomitant]
     Active Substance: SERTRALINE HYDROCHLORIDE
  4. SINGULAIR [Concomitant]
     Active Substance: MONTELUKAST SODIUM
  5. CULTURELLE PROBIOTICS [Concomitant]
  6. XYZAL [Concomitant]
     Active Substance: LEVOCETIRIZINE DIHYDROCHLORIDE
  7. CANNABIS CARTRIDGE [Suspect]
     Active Substance: CANNABIS SATIVA SUBSP. INDICA TOP\DEVICE
  8. METAMUCIL [Concomitant]
     Active Substance: PLANTAGO SEED

REACTIONS (12)
  - Depression [None]
  - Gastrointestinal disorder [None]
  - Cough [None]
  - Taste disorder [None]
  - Abdominal pain upper [None]
  - Gastrooesophageal reflux disease [None]
  - Dysphonia [None]
  - Dysphagia [None]
  - Diarrhoea [None]
  - Constipation [None]
  - Nausea [None]
  - Anxiety [None]
